FAERS Safety Report 16163273 (Version 1)
Quarter: 2019Q2

REPORT INFORMATION
  Report Type: Spontaneous
  Country: US (occurrence: US)
  Receive Date: 20190405
  Receipt Date: 20190405
  Transmission Date: 20190711
  Serious: Yes (Hospitalization, Other)
  Sender: FDA-Public Use
  Company Number: US-DRREDDYS-USA/USA/19/0109289

PATIENT
  Age: 65 Year
  Sex: Male

DRUGS (1)
  1. MELPHALAN HYDROCHLORIDE FOR INJECTION [Suspect]
     Active Substance: MELPHALAN HYDROCHLORIDE
     Indication: PLASMA CELL MYELOMA
     Dosage: HIGH DOSE OF MELPHALAN AT 200 MG/M2

REACTIONS (1)
  - Atrial fibrillation [Recovered/Resolved]
